FAERS Safety Report 9646095 (Version 1)
Quarter: 2013Q4

REPORT INFORMATION
  Report Type: Spontaneous
  Country: US (occurrence: None)
  Receive Date: 20131023
  Receipt Date: 20131023
  Transmission Date: 20140711
  Serious: Yes (Hospitalization, Other)
  Sender: FDA-Public Use
  Company Number: ENTC2013-0395

PATIENT
  Sex: Female

DRUGS (1)
  1. STALEVO [Suspect]

REACTIONS (5)
  - Economic problem [None]
  - Aphonia [None]
  - Dysphagia [None]
  - Treatment noncompliance [None]
  - Condition aggravated [None]
